FAERS Safety Report 9441499 (Version 2)
Quarter: 2014Q1

REPORT INFORMATION
  Report Type: Spontaneous
  Country: US (occurrence: US)
  Receive Date: 20130805
  Receipt Date: 20140227
  Transmission Date: 20141002
  Serious: No
  Sender: FDA-Public Use
  Company Number: US-PFIZER INC-2013226682

PATIENT
  Age: 59 Year
  Sex: Male
  Weight: 90.2 kg

DRUGS (2)
  1. RISPERIDONE [Suspect]
     Dosage: UNK
  2. ZIPRASIDONE HCL [Suspect]
     Dosage: UNK
     Dates: start: 2008, end: 2013

REACTIONS (3)
  - Tremor [Unknown]
  - Speech disorder [Recovering/Resolving]
  - Drug ineffective [Unknown]
